FAERS Safety Report 7952150-0 (Version None)
Quarter: 2011Q4

REPORT INFORMATION
  Report Type: 
  Country: None (occurrence: None)
  Receive Date: 20111201
  Receipt Date: 20111116
  Transmission Date: 20120403
  Serious: Yes (Other)
  Sender: FDA-Public Use
  Company Number: PHHY2011DK103560

PATIENT
  Sex: Female

DRUGS (3)
  1. PAMIDRONATE DISODIUM [Suspect]
     Indication: HYPERCALCAEMIA
     Dosage: 1 MG/KG ONCE A DAY
     Route: 042
  2. FUROSEMIDE [Concomitant]
     Indication: HYPERCALCAEMIA
  3. ORAL REHYDRATION SALT FORMULATIONS [Concomitant]

REACTIONS (6)
  - HYPERHIDROSIS [None]
  - HYPOCALCAEMIA [None]
  - PSYCHOMOTOR HYPERACTIVITY [None]
  - IRRITABILITY [None]
  - HYPERTONIA [None]
  - PYREXIA [None]
